FAERS Safety Report 6292011-9 (Version None)
Quarter: 2009Q3

REPORT INFORMATION
  Report Type: 
  Country: None (occurrence: None)
  Receive Date: 20090729
  Receipt Date: 20090721
  Transmission Date: 20100115
  Serious: Yes (Hospitalization, Other)
  Sender: FDA-Public Use
  Company Number: JPI-P-008032

PATIENT
  Age: 57 Year
  Sex: Female
  Weight: 58.9676 kg

DRUGS (12)
  1. XYREM [Suspect]
     Indication: INSOMNIA
     Dosage: 4.5 GM (2.25 GM, 2 IN 1 D), ORAL, 9 GM (4.5 GM, 2 IN 1 D), ORAL, 6 GM (2 GM, 3 IN 1 D), ORAL
     Route: 048
     Dates: start: 20080101, end: 20080101
  2. XYREM [Suspect]
     Indication: SLEEP DISORDER
     Dosage: 4.5 GM (2.25 GM, 2 IN 1 D), ORAL, 9 GM (4.5 GM, 2 IN 1 D), ORAL, 6 GM (2 GM, 3 IN 1 D), ORAL
     Route: 048
     Dates: start: 20080101, end: 20080101
  3. XYREM [Suspect]
     Indication: INSOMNIA
     Dosage: 4.5 GM (2.25 GM, 2 IN 1 D), ORAL, 9 GM (4.5 GM, 2 IN 1 D), ORAL, 6 GM (2 GM, 3 IN 1 D), ORAL
     Route: 048
     Dates: start: 20060324
  4. XYREM [Suspect]
     Indication: SLEEP DISORDER
     Dosage: 4.5 GM (2.25 GM, 2 IN 1 D), ORAL, 9 GM (4.5 GM, 2 IN 1 D), ORAL, 6 GM (2 GM, 3 IN 1 D), ORAL
     Route: 048
     Dates: start: 20060324
  5. XYREM [Suspect]
     Indication: INSOMNIA
     Dosage: 4.5 GM (2.25 GM, 2 IN 1 D), ORAL, 9 GM (4.5 GM, 2 IN 1 D), ORAL, 6 GM (2 GM, 3 IN 1 D), ORAL
     Route: 048
     Dates: start: 20080822
  6. XYREM [Suspect]
     Indication: SLEEP DISORDER
     Dosage: 4.5 GM (2.25 GM, 2 IN 1 D), ORAL, 9 GM (4.5 GM, 2 IN 1 D), ORAL, 6 GM (2 GM, 3 IN 1 D), ORAL
     Route: 048
     Dates: start: 20080822
  7. LEVOTHYROXINE SODIUM (PILL) [Concomitant]
  8. TRIIODOTHYRONINE (PILL) [Concomitant]
  9. BUPROPION (PILL) [Concomitant]
  10. LUBIPROSTONE (PILL) [Concomitant]
  11. AMITRIPTYLINE (PILL) [Concomitant]
  12. ARIPIPRAZOLE (PILL) [Concomitant]

REACTIONS (13)
  - ACTIVITIES OF DAILY LIVING IMPAIRED [None]
  - ARTHRALGIA [None]
  - ASTHENIA [None]
  - DECREASED APPETITE [None]
  - DIARRHOEA [None]
  - FATIGUE [None]
  - GAIT DISTURBANCE [None]
  - HYPERVENTILATION [None]
  - MUSCLE SPASMS [None]
  - NERVOUSNESS [None]
  - ROTATOR CUFF SYNDROME [None]
  - THERAPEUTIC RESPONSE DECREASED [None]
  - WEIGHT DECREASED [None]
